FAERS Safety Report 17972509 (Version 1)
Quarter: 2020Q2

REPORT INFORMATION
  Report Type: Spontaneous
  Country: US (occurrence: US)
  Receive Date: 20200630
  Receipt Date: 20200630
  Transmission Date: 20200714
  Serious: No
  Sender: FDA-Public Use
  Company Number: None

PATIENT
  Age: 42 Year
  Sex: Male
  Weight: 157.5 kg

DRUGS (5)
  1. EXTENZE PLUS DIETARY SUPPLEMENT MALE ENHANCEMENT [Suspect]
     Active Substance: DIETARY SUPPLEMENT
     Indication: ERECTILE DYSFUNCTION
     Dosage: ?          QUANTITY:1 TABLET(S);?
     Route: 048
     Dates: start: 20200623, end: 20200630
  2. VYVANSE [Concomitant]
     Active Substance: LISDEXAMFETAMINE DIMESYLATE
  3. LEXAPRO [Concomitant]
     Active Substance: ESCITALOPRAM OXALATE
  4. IBUPROFEN. [Concomitant]
     Active Substance: IBUPROFEN
  5. AUTOPAP [Concomitant]

REACTIONS (5)
  - Tremor [None]
  - Chills [None]
  - Hyperhidrosis [None]
  - Abdominal pain upper [None]
  - Vomiting [None]

NARRATIVE: CASE EVENT DATE: 20200630
